FAERS Safety Report 4512859-8 (Version None)
Quarter: 2004Q4

REPORT INFORMATION
  Report Type: 
  Country: None (occurrence: None)
  Receive Date: 20041119
  Receipt Date: 20041119
  Transmission Date: 20050328
  Serious: Yes (Other)
  Sender: FDA-Public Use
  Company Number: None

PATIENT
  Sex: Female
  Weight: 51.7101 kg

DRUGS (3)
  1. CHLORTRIMETON (OTC) [Suspect]
     Dosage: 1/2 TAB AS NEEDED
  2. BENADRYL [Suspect]
     Dosage: 1 AS NEEDED
  3. .. [Concomitant]

REACTIONS (1)
  - REACTION TO COLOURING [None]
